FAERS Safety Report 17275374 (Version 4)
Quarter: 2021Q3

REPORT INFORMATION
  Report Type: Report from Study
  Country: JP (occurrence: JP)
  Receive Date: 20200116
  Receipt Date: 20210811
  Transmission Date: 20211014
  Serious: Yes (Hospitalization)
  Sender: FDA-Public Use
  Company Number: JP-ROCHE-2468853

PATIENT
  Age: 71 Year
  Sex: Female
  Weight: 41.3 kg

DRUGS (14)
  1. ANORO [Concomitant]
     Active Substance: UMECLIDINIUM BROMIDE\VILANTEROL TRIFENATATE
     Indication: CHRONIC OBSTRUCTIVE PULMONARY DISEASE
     Dosage: ONE INHALATION ONCE
     Route: 055
  2. XYLOCAINE [Concomitant]
     Active Substance: LIDOCAINE HYDROCHLORIDE
     Indication: ORAL PAIN
     Dosage: UNCERTAIN DOSAGE AND GARGLE
  3. CARBOPLATIN. [Suspect]
     Active Substance: CARBOPLATIN
     Indication: LUNG ADENOCARCINOMA
     Route: 041
     Dates: start: 20191018
  4. ALIMTA [Suspect]
     Active Substance: PEMETREXED DISODIUM
     Indication: LUNG ADENOCARCINOMA
     Route: 041
     Dates: start: 20191018
  5. BROTIZOLAM [Concomitant]
     Active Substance: BROTIZOLAM
     Indication: INSOMNIA
     Dosage: AT THE SLEEP LOSS
     Route: 048
  6. ROSUVASTATIN. [Concomitant]
     Active Substance: ROSUVASTATIN
     Indication: HYPERLIPIDAEMIA
     Dosage: DURING A DAY ONCE AFTER THE SUPPER
     Route: 048
  7. BROTIZOLAM [Concomitant]
     Active Substance: BROTIZOLAM
     Indication: INSOMNIA
     Dosage: AT THE SLEEP LOSS
     Route: 048
  8. ATEZOLIZUMAB. [Suspect]
     Active Substance: ATEZOLIZUMAB
     Indication: LUNG ADENOCARCINOMA
     Route: 041
     Dates: start: 20191018, end: 20210419
  9. FRESMIN S [Concomitant]
     Active Substance: HYDROXOCOBALAMIN
     Indication: PROPHYLAXIS
     Route: 030
  10. BEVACIZUMAB. [Suspect]
     Active Substance: BEVACIZUMAB
     Indication: LUNG ADENOCARCINOMA
     Route: 041
     Dates: start: 20191018, end: 20210419
  11. ANETOCAINE [Concomitant]
     Indication: ORAL PAIN
     Dosage: UNCERTAIN DOSAGE AND GARGLE
  12. LOXONIN [Concomitant]
     Active Substance: LOXOPROFEN SODIUM
     Indication: MYALGIA
     Dosage: IT STICKS IT ON THE DISEASED PART.
     Route: 061
     Dates: start: 20191019
  13. CALONAL [Concomitant]
     Active Substance: ACETAMINOPHEN
     Indication: ORAL PAIN
     Dosage: AT THE PAIN
     Route: 048
  14. SODIUM BICARBONATE;SODIUM GUALENATE HYDRATE [Concomitant]
     Indication: ORAL PAIN
     Dosage: GARGLE

REACTIONS (2)
  - Pyrexia [Recovered/Resolved]
  - Blood creatinine increased [Recovering/Resolving]

NARRATIVE: CASE EVENT DATE: 20191026
